FAERS Safety Report 24728729 (Version 2)
Quarter: 2025Q2

REPORT INFORMATION
  Report Type: Report from Study
  Country: ZA (occurrence: ZA)
  Receive Date: 20241212
  Receipt Date: 20250529
  Transmission Date: 20250716
  Serious: Yes (Other)
  Sender: REGENERON
  Company Number: ZA-BAYER-2024A174871

PATIENT
  Age: 76 Year
  Sex: Female

DRUGS (2)
  1. EYLEA [Suspect]
     Active Substance: AFLIBERCEPT
     Indication: Neovascular age-related macular degeneration
     Dates: start: 20230511, end: 20240703
  2. EYLEA [Suspect]
     Active Substance: AFLIBERCEPT
     Dates: start: 20240515

REACTIONS (4)
  - Eye infection [Unknown]
  - Blindness [Unknown]
  - Visual impairment [Unknown]
  - Eye pain [Unknown]

NARRATIVE: CASE EVENT DATE: 20240701
